FAERS Safety Report 5031445-7 (Version None)
Quarter: 2006Q2

REPORT INFORMATION
  Report Type: 
  Country: None (occurrence: None)
  Receive Date: 20060621
  Receipt Date: 20060522
  Transmission Date: 20061013
  Serious: Yes (Hospitalization)
  Sender: FDA-Public Use
  Company Number: JP-BRISTOL-MYERS SQUIBB COMPANY-13387915

PATIENT
  Age: 79 Year
  Sex: Female

DRUGS (10)
  1. TAXOL [Suspect]
     Indication: FALLOPIAN TUBE CANCER
     Route: 041
     Dates: start: 20060127, end: 20060403
  2. PARAPLATIN [Suspect]
     Indication: FALLOPIAN TUBE CANCER
     Route: 041
     Dates: start: 20060127
  3. DECADRON [Concomitant]
     Route: 042
     Dates: start: 20060127, end: 20060403
  4. ZANTAC [Concomitant]
     Route: 042
     Dates: start: 20060127, end: 20060403
  5. RESTAMIN [Concomitant]
     Route: 048
     Dates: start: 20060127, end: 20060407
  6. ISMOX [Concomitant]
     Route: 048
     Dates: start: 20060127
  7. BASEN [Concomitant]
     Route: 048
     Dates: start: 20060127
  8. AMARYL [Concomitant]
     Route: 048
     Dates: start: 20060127
  9. MICARDIS [Concomitant]
     Route: 048
     Dates: start: 20060127
  10. CARDENALIN [Concomitant]
     Route: 048
     Dates: start: 20060127

REACTIONS (2)
  - NEUROPATHY PERIPHERAL [None]
  - SKIN EXFOLIATION [None]
